FAERS Safety Report 10367397 (Version 3)
Quarter: 2015Q1

REPORT INFORMATION
  Report Type: Spontaneous
  Country: PT (occurrence: PT)
  Receive Date: 20140807
  Receipt Date: 20150320
  Transmission Date: 20150720
  Serious: Yes (Life-Threatening)
  Sender: FDA-Public Use
  Company Number: PT-ROCHE-1441846

PATIENT
  Age: 62 Year
  Sex: Male
  Weight: 83 kg

DRUGS (9)
  1. COPEGUS [Interacting]
     Active Substance: RIBAVIRIN
     Indication: HEPATITIS C VIRUS TEST POSITIVE
     Route: 048
     Dates: start: 20130306, end: 20140204
  2. PEGASYS [Suspect]
     Active Substance: PEGINTERFERON ALFA-2A
     Indication: HEPATITIS C VIRUS TEST POSITIVE
     Route: 058
     Dates: start: 20130306, end: 20140129
  3. VENLAFAXINE [Concomitant]
     Active Substance: VENLAFAXINE HYDROCHLORIDE
     Indication: DEPRESSION
     Route: 048
     Dates: start: 20130327
  4. NEUPOGEN [Concomitant]
     Active Substance: FILGRASTIM
     Indication: NEUTROPENIA
     Route: 058
     Dates: start: 20130320, end: 20140205
  5. VICTRELIS [Interacting]
     Active Substance: BOCEPREVIR
     Indication: HEPATITIS C VIRUS TEST POSITIVE
     Route: 048
     Dates: start: 20130402, end: 20131016
  6. PARACETAMOL [Concomitant]
     Active Substance: ACETAMINOPHEN
     Indication: PRODUCT USED FOR UNKNOWN INDICATION
     Route: 065
  7. ATARAX [Concomitant]
     Active Substance: HYDROXYZINE\HYDROXYZINE HYDROCHLORIDE
     Indication: PRURITUS
     Route: 048
     Dates: start: 20130402, end: 20130424
  8. SERENAL [Concomitant]
     Active Substance: OXAZOLAM
     Indication: ANXIETY
     Route: 048
     Dates: start: 20130306
  9. DIPROSONE [Concomitant]
     Active Substance: BETAMETHASONE DIPROPIONATE
     Indication: DRY SKIN
     Route: 003
     Dates: start: 20130402

REACTIONS (12)
  - Skin ulcer [Recovered/Resolved]
  - Affect lability [Recovered/Resolved]
  - Anaemia [Recovered/Resolved]
  - Blister [Recovered/Resolved]
  - Depression [Recovered/Resolved]
  - Skin lesion [Recovered/Resolved]
  - Thrombocytopenia [Recovered/Resolved]
  - Libido disorder [Recovered/Resolved]
  - Skin wound [Recovered/Resolved]
  - Mucosal dryness [Recovered/Resolved]
  - Condition aggravated [Recovered/Resolved]
  - Dermatitis [Recovered/Resolved]

NARRATIVE: CASE EVENT DATE: 201304
